FAERS Safety Report 13820969 (Version 2)
Quarter: 2019Q3

REPORT INFORMATION
  Report Type: Spontaneous
  Country: US (occurrence: US)
  Receive Date: 20170801
  Receipt Date: 20190725
  Transmission Date: 20191004
  Serious: No
  Sender: FDA-Public Use
  Company Number: US-GLENMARK PHARMACEUTICALS-2016GMK024178

PATIENT

DRUGS (1)
  1. MUPIROCIN OINTMENT USP, 2% [Suspect]
     Active Substance: MUPIROCIN
     Indication: HERPES ZOSTER
     Dosage: UNK
     Route: 061

REACTIONS (4)
  - Drug ineffective for unapproved indication [Unknown]
  - Product physical consistency issue [Unknown]
  - Product container issue [Unknown]
  - Product packaging quantity issue [Unknown]
